FAERS Safety Report 7495783-0 (Version None)
Quarter: 2011Q2

REPORT INFORMATION
  Report Type: 
  Country: None (occurrence: None)
  Receive Date: 20110523
  Receipt Date: 20110518
  Transmission Date: 20111010
  Serious: Yes (Hospitalization, Other)
  Sender: FDA-Public Use
  Company Number: BR-ELI_LILLY_AND_COMPANY-BR201105005639

PATIENT
  Sex: Female
  Weight: 94 kg

DRUGS (2)
  1. CYMBALTA [Suspect]
     Dosage: 30 MG, QD
     Route: 048
  2. CYMBALTA [Suspect]
     Indication: FIBROMYALGIA
     Dosage: 60 MG, QD
     Route: 048

REACTIONS (2)
  - FOOT FRACTURE [None]
  - FALL [None]
